FAERS Safety Report 5329986-8 (Version None)
Quarter: 2007Q2

REPORT INFORMATION
  Report Type: 
  Country: None (occurrence: None)
  Receive Date: 20070521
  Receipt Date: 20070517
  Transmission Date: 20071010
  Serious: Yes (Hospitalization, Other)
  Sender: FDA-Public Use
  Company Number: A0651761A

PATIENT
  Age: 76 Year
  Sex: Female

DRUGS (7)
  1. VALTREX [Suspect]
     Dosage: 1G PER DAY
     Route: 048
  2. COUMADIN [Concomitant]
  3. NORVASC [Concomitant]
  4. TOPROL-XL [Concomitant]
  5. COZAAR [Concomitant]
  6. ARIMIDEX [Concomitant]
  7. TRANXENE [Concomitant]

REACTIONS (3)
  - ASTHENIA [None]
  - CHEST DISCOMFORT [None]
  - TACHYCARDIA [None]
